FAERS Safety Report 23035666 (Version 1)
Quarter: 2023Q4

REPORT INFORMATION
  Report Type: Spontaneous
  Country: FR (occurrence: FR)
  Receive Date: 20231006
  Receipt Date: 20231006
  Transmission Date: 20240110
  Serious: Yes (Other)
  Sender: FDA-Public Use
  Company Number: None

PATIENT
  Age: 34 Year
  Sex: Female

DRUGS (5)
  1. FOLLITROPIN\LUTROPIN ALFA [Suspect]
     Active Substance: FOLLITROPIN\LUTROPIN ALFA
     Indication: Controlled ovarian stimulation
     Route: 058
     Dates: start: 202305, end: 202305
  2. CHORIOGONADOTROPIN ALFA [Suspect]
     Active Substance: CHORIOGONADOTROPIN ALFA
     Indication: Controlled ovarian stimulation
     Dosage: 250 MICROGRAMS /0.5 ML SOLUTION FOR INJECTION IN PRE-FILLED SYRINGE
     Route: 058
     Dates: start: 202305, end: 202305
  3. ORGALUTRAN [Suspect]
     Active Substance: GANIRELIX ACETATE
     Indication: Controlled ovarian stimulation
     Dosage: 0.25 MG/0.5 ML, SOLUTION INJECTABLE
     Route: 058
     Dates: start: 202305, end: 202305
  4. ESTRADIOL [Suspect]
     Active Substance: ESTRADIOL
     Indication: Controlled ovarian stimulation
     Route: 048
     Dates: start: 20230502, end: 20230511
  5. TRIPTORELIN [Suspect]
     Active Substance: TRIPTORELIN
     Indication: Controlled ovarian stimulation
     Route: 058
     Dates: start: 202305, end: 202305

REACTIONS (2)
  - Retinal vein occlusion [Recovered/Resolved]
  - Retinal artery occlusion [Recovered/Resolved]

NARRATIVE: CASE EVENT DATE: 20230804
